FAERS Safety Report 9980808 (Version 1)
Quarter: 2014Q1

REPORT INFORMATION
  Report Type: Spontaneous
  Country: US (occurrence: None)
  Receive Date: 20140306
  Receipt Date: 20140306
  Transmission Date: 20141002
  Serious: Yes (Hospitalization)
  Sender: FDA-Public Use
  Company Number: None

PATIENT
  Age: 60 Year
  Sex: Female
  Weight: 123.8 kg

DRUGS (3)
  1. METHOTREXATE [Suspect]
  2. PROCARBAZINE [Suspect]
  3. RITUXIMAB [Suspect]

REACTIONS (12)
  - Dyspnoea [None]
  - Asthenia [None]
  - Deep vein thrombosis [None]
  - Retroperitoneal haemorrhage [None]
  - Mental status changes [None]
  - Sepsis [None]
  - Shock haemorrhagic [None]
  - Metabolic acidosis [None]
  - Multi-organ failure [None]
  - Treatment failure [None]
  - Pain in extremity [None]
  - Post procedural haemorrhage [None]
